FAERS Safety Report 11917327 (Version 1)
Quarter: 2016Q1

REPORT INFORMATION
  Report Type: Spontaneous
  Country: US (occurrence: US)
  Receive Date: 20160114
  Receipt Date: 20160114
  Transmission Date: 20160526
  Serious: Yes (Hospitalization, Disabling)
  Sender: FDA-Public Use
  Company Number: US-BRISTOL-MYERS SQUIBB COMPANY-BMS-2016-000126

PATIENT
  Sex: Female
  Weight: 46.26 kg

DRUGS (4)
  1. PREVACID [Concomitant]
     Active Substance: LANSOPRAZOLE
     Indication: PRODUCT USED FOR UNKNOWN INDICATION
     Route: 065
  2. GABAPENTIN. [Concomitant]
     Active Substance: GABAPENTIN
     Indication: PRODUCT USED FOR UNKNOWN INDICATION
     Dosage: 300 MG, UNK
     Route: 065
  3. LISINOPRIL. [Concomitant]
     Active Substance: LISINOPRIL
     Indication: PRODUCT USED FOR UNKNOWN INDICATION
     Dosage: UNK, QD
     Route: 065
  4. SPRYCEL [Suspect]
     Active Substance: DASATINIB
     Indication: NEOPLASM MALIGNANT
     Dosage: 70 UNK, UNK
     Route: 048
     Dates: start: 201301

REACTIONS (5)
  - Pain [Unknown]
  - Vomiting [Unknown]
  - Diarrhoea [Unknown]
  - Hypoaesthesia [Unknown]
  - Fatigue [Unknown]
